FAERS Safety Report 5347658-0 (Version None)
Quarter: 2007Q2

REPORT INFORMATION
  Report Type: 
  Country: None (occurrence: None)
  Receive Date: 20070604
  Receipt Date: 20070604
  Transmission Date: 20071010
  Serious: Yes (Life-Threatening)
  Sender: FDA-Public Use
  Company Number: None

PATIENT
  Age: 52 Year
  Sex: Female
  Weight: 99.7913 kg

DRUGS (2)
  1. ROZEREM [Suspect]
     Indication: INSOMNIA
     Dosage: 8 MG ONCE HS PO
     Route: 048
     Dates: start: 20070426
  2. ROZEREM [Suspect]
     Indication: INSOMNIA
     Dosage: 8 MG ONCE HS PO
     Route: 048
     Dates: start: 20070427

REACTIONS (2)
  - HEART RATE DECREASED [None]
  - PALPITATIONS [None]
